FAERS Safety Report 9465501 (Version 1)
Quarter: 2013Q3

REPORT INFORMATION
  Report Type: Spontaneous
  Country: US (occurrence: US)
  Receive Date: 20130820
  Receipt Date: 20130820
  Transmission Date: 20140515
  Serious: Yes (Hospitalization)
  Sender: FDA-Public Use
  Company Number: US-BRISTOL-MYERS SQUIBB COMPANY-19196369

PATIENT
  Age: 32 Year
  Sex: Male

DRUGS (2)
  1. ABILIFY [Suspect]
     Dosage: 2-3 YEARS
     Route: 048
  2. ABILIFY MAINTENA INJECTION [Suspect]
     Indication: BIPOLAR DISORDER
     Route: 030
     Dates: start: 20130715

REACTIONS (1)
  - Disorientation [Unknown]
